FAERS Safety Report 6849148-2 (Version None)
Quarter: 2010Q3

REPORT INFORMATION
  Report Type: 
  Country: None (occurrence: None)
  Receive Date: 20100716
  Receipt Date: 20100706
  Transmission Date: 20110219
  Serious: Yes (Other)
  Sender: FDA-Public Use
  Company Number: PHEH2006US15185

PATIENT
  Sex: Female
  Weight: 76.644 kg

DRUGS (14)
  1. ZOMETA [Suspect]
     Dosage: 4 MG, QMO
     Dates: start: 20060101, end: 20060731
  2. VIOXX [Concomitant]
     Dosage: 50 MG, QD
     Dates: start: 20040801
  3. XELODA [Concomitant]
     Dosage: 500 MG, UNK
  4. AVASTIN [Concomitant]
     Dosage: 900 MG, BIW
  5. VITAMIN B-12 [Concomitant]
     Dosage: 1000 MG, QMO
  6. COREG [Concomitant]
     Dosage: 6.25 MG, QD
  7. FUROSEMIDE [Concomitant]
     Dosage: 20 MG, QD
  8. LISINOPRIL [Concomitant]
     Dosage: 10 MG, QD
  9. EFFEXOR [Concomitant]
  10. XANAX [Concomitant]
  11. NAVELBINE [Concomitant]
  12. AUGMENTIN '125' [Concomitant]
  13. HYDROCODONE [Concomitant]
  14. ADRIAMYCIN PFS [Suspect]
     Dosage: UNK

REACTIONS (46)
  - ANXIETY [None]
  - ASPIRATION PLEURAL CAVITY [None]
  - ATELECTASIS [None]
  - BONE DISORDER [None]
  - BONE OPERATION [None]
  - CARDIAC FAILURE CONGESTIVE [None]
  - CARDIOTOXICITY [None]
  - DECREASED INTEREST [None]
  - DENTAL CARIES [None]
  - DENTAL OPERATION [None]
  - DEPRESSION [None]
  - DISORIENTATION [None]
  - DIZZINESS [None]
  - EJECTION FRACTION DECREASED [None]
  - ENDODONTIC PROCEDURE [None]
  - FIBROMYALGIA [None]
  - GENERAL PHYSICAL HEALTH DETERIORATION [None]
  - HILAR LYMPHADENOPATHY [None]
  - IMPAIRED HEALING [None]
  - INSOMNIA [None]
  - LUNG CONSOLIDATION [None]
  - LYMPHADENOPATHY [None]
  - MALIGNANT PLEURAL EFFUSION [None]
  - METASTASES TO CENTRAL NERVOUS SYSTEM [None]
  - METASTASES TO HEART [None]
  - METASTASES TO LUNG [None]
  - METASTASES TO LYMPH NODES [None]
  - METASTASES TO PERITONEUM [None]
  - METASTASES TO THE MEDIASTINUM [None]
  - NAUSEA [None]
  - NEURALGIA [None]
  - OMENTUM NEOPLASM [None]
  - OSTEITIS [None]
  - OSTEOARTHRITIS [None]
  - OSTEONECROSIS OF JAW [None]
  - PAIN [None]
  - PERICARDIAL EFFUSION [None]
  - PLEURAL EFFUSION [None]
  - PNEUMONITIS [None]
  - SPLENIC CYST [None]
  - STOMATITIS [None]
  - SWELLING [None]
  - TOOTH EXTRACTION [None]
  - TOOTHACHE [None]
  - VASOGENIC CEREBRAL OEDEMA [None]
  - VOMITING [None]
